FAERS Safety Report 24684057 (Version 1)
Quarter: 2024Q4

REPORT INFORMATION
  Report Type: Spontaneous
  Country: FR (occurrence: FR)
  Receive Date: 20241202
  Receipt Date: 20241202
  Transmission Date: 20250115
  Serious: Yes (Hospitalization)
  Sender: AUROBINDO
  Company Number: FR-AFSSAPS-LL2024002081

PATIENT
  Age: 83 Year
  Sex: Male
  Weight: 66 kg

DRUGS (2)
  1. FLUCONAZOLE [Suspect]
     Active Substance: FLUCONAZOLE
     Indication: Valvuloplasty cardiac
     Dosage: 200 MILLIGRAM
     Route: 048
     Dates: start: 20241001, end: 20241011
  2. WARFARIN [Suspect]
     Active Substance: WARFARIN
     Indication: Valvuloplasty cardiac
     Dosage: 5 MILLIGRAM
     Route: 048
     Dates: end: 20241011

REACTIONS (2)
  - International normalised ratio increased [Recovering/Resolving]
  - Haemorrhage [Recovering/Resolving]

NARRATIVE: CASE EVENT DATE: 20241011
